FAERS Safety Report 4513475-4 (Version None)
Quarter: 2004Q4

REPORT INFORMATION
  Report Type: 
  Country: None (occurrence: None)
  Receive Date: 20041130
  Receipt Date: 20041122
  Transmission Date: 20050328
  Serious: Yes (Disabling)
  Sender: FDA-Public Use
  Company Number: 200414379FR

PATIENT
  Age: 61 Year
  Sex: Male
  Weight: 70 kg

DRUGS (7)
  1. RIFADIN [Suspect]
     Indication: TUBERCULOSIS OF PERIPHERAL LYMPH NODES
     Route: 048
     Dates: start: 20021203
  2. RIMIFON [Suspect]
     Indication: TUBERCULOSIS OF PERIPHERAL LYMPH NODES
     Route: 048
     Dates: start: 20021203
  3. ETHAMBUTOL [Suspect]
     Indication: TUBERCULOSIS OF PERIPHERAL LYMPH NODES
     Route: 048
     Dates: start: 20021203
  4. TRIATEC [Concomitant]
  5. LASILIX [Concomitant]
  6. OMEPRAZOLE [Concomitant]
  7. KARDEGIC [Concomitant]

REACTIONS (1)
  - REFLEX SYMPATHETIC DYSTROPHY [None]
